FAERS Safety Report 7728481-6 (Version None)
Quarter: 2011Q3

REPORT INFORMATION
  Report Type: 
  Country: None (occurrence: None)
  Receive Date: 20110905
  Receipt Date: 20110825
  Transmission Date: 20111222
  Serious: Yes (Other)
  Sender: FDA-Public Use
  Company Number: PHHY2011US31076

PATIENT
  Sex: Male

DRUGS (1)
  1. GILENYA [Suspect]
     Indication: MULTIPLE SCLEROSIS
     Dosage: 0.5 MG, QD
     Route: 048
     Dates: start: 20110216

REACTIONS (7)
  - BURNING SENSATION [None]
  - MUSCULOSKELETAL STIFFNESS [None]
  - PROSTATITIS [None]
  - CHEST PAIN [None]
  - SPEECH DISORDER [None]
  - BLOOD PRESSURE SYSTOLIC INCREASED [None]
  - MALAISE [None]
